FAERS Safety Report 18780765 (Version 1)
Quarter: 2021Q1

REPORT INFORMATION
  Report Type: Spontaneous
  Country: US (occurrence: US)
  Receive Date: 20210122
  Receipt Date: 20210122
  Transmission Date: 20210419
  Serious: Yes (Death, Hospitalization)
  Sender: FDA-Public Use
  Company Number: None

PATIENT
  Age: 59 Year
  Sex: Male

DRUGS (1)
  1. REVLIMID [Suspect]
     Active Substance: LENALIDOMIDE
     Indication: NON-HODGKIN^S LYMPHOMA
     Route: 048
     Dates: start: 20191010, end: 20201227

REACTIONS (5)
  - Respiratory failure [None]
  - Pneumonia [None]
  - Pulse absent [None]
  - Therapy interrupted [None]
  - Apnoea [None]

NARRATIVE: CASE EVENT DATE: 20210103
